FAERS Safety Report 9772388 (Version 1)
Quarter: 2013Q4

REPORT INFORMATION
  Report Type: Spontaneous
  Country: TR (occurrence: TR)
  Receive Date: 20131219
  Receipt Date: 20131219
  Transmission Date: 20140711
  Serious: Yes (Hospitalization)
  Sender: FDA-Public Use
  Company Number: TR-SA-2013SA130967

PATIENT
  Age: 47 Year
  Sex: Female

DRUGS (5)
  1. RIFAMPICIN [Suspect]
     Indication: TUBERCULOUS PLEURISY
     Route: 065
  2. PYRAZINAMIDE [Suspect]
     Indication: TUBERCULOUS PLEURISY
     Route: 065
  3. ISONIAZID [Suspect]
     Indication: TUBERCULOUS PLEURISY
     Route: 065
  4. STREPTOMYCIN [Suspect]
     Indication: TUBERCULOUS PLEURISY
     Route: 065
  5. ORAL ANTIDIABETICS [Concomitant]
     Indication: TYPE 2 DIABETES MELLITUS
     Route: 048

REACTIONS (16)
  - Hepatic failure [Recovering/Resolving]
  - Ascites [Recovering/Resolving]
  - Abdominal pain [Recovering/Resolving]
  - Abdominal distension [Recovering/Resolving]
  - Fatigue [Recovering/Resolving]
  - Jaundice [Recovering/Resolving]
  - Aspartate aminotransferase increased [Recovering/Resolving]
  - Alanine aminotransferase increased [Recovering/Resolving]
  - Gamma-glutamyltransferase increased [Recovering/Resolving]
  - Blood alkaline phosphatase increased [Recovering/Resolving]
  - Blood lactate dehydrogenase increased [Recovering/Resolving]
  - Blood bilirubin increased [Recovering/Resolving]
  - Protein total decreased [Recovering/Resolving]
  - Blood albumin decreased [Recovering/Resolving]
  - Prothrombin time prolonged [Recovering/Resolving]
  - International normalised ratio decreased [Recovering/Resolving]
